FAERS Safety Report 20180017 (Version 1)
Quarter: 2021Q4

REPORT INFORMATION
  Report Type: Spontaneous
  Country: CA (occurrence: CA)
  Receive Date: 20211214
  Receipt Date: 20211214
  Transmission Date: 20220303
  Serious: Yes (Hospitalization, Other)
  Sender: FDA-Public Use
  Company Number: CA-Accord-247214

PATIENT
  Age: 18 Year
  Sex: Female

DRUGS (3)
  1. FLUOXETINE [Suspect]
     Active Substance: FLUOXETINE HYDROCHLORIDE
     Dosage: 30 TABLETS OF FLUOXETINE 10 MG (300 MG)
  2. VENLAFAXINE [Suspect]
     Active Substance: VENLAFAXINE HYDROCHLORIDE
     Dosage: 120 TABLETS OF VENLAFAXINE XR 150 MG (18,000 MG)
  3. DIAZEPAM [Suspect]
     Active Substance: DIAZEPAM
     Dosage: 10 TABLETS OF DIAZEPAM 5 MG (50 MG).

REACTIONS (4)
  - Intentional overdose [Unknown]
  - Hypotension [Recovered/Resolved]
  - Liver injury [Recovered/Resolved]
  - Acute kidney injury [Recovered/Resolved]
